FAERS Safety Report 9925809 (Version 2)
Quarter: 2014Q1

REPORT INFORMATION
  Report Type: Spontaneous
  Country: US (occurrence: US)
  Receive Date: 20140226
  Receipt Date: 20140318
  Transmission Date: 20141002
  Serious: No
  Sender: FDA-Public Use
  Company Number: US-009507513-1402USA011871

PATIENT
  Age: 54 Year
  Sex: Female
  Weight: 60.32 kg

DRUGS (8)
  1. OXYTROL FOR WOMEN [Suspect]
     Indication: INCONTINENCE
     Dosage: 1 DF, Q4D
     Route: 062
     Dates: start: 20131104, end: 20131120
  2. LEVOTHYROXINE SODIUM [Concomitant]
     Indication: HYPOTHYROIDISM
     Dosage: UNK, UNKNOWN
  3. ARMOUR THYROID TABLETS [Concomitant]
     Indication: HYPOTHYROIDISM
     Dosage: UNK, UNKNOWN
  4. PERCOCET [Concomitant]
     Indication: FIBROMYALGIA
     Dosage: UNK, UNKNOWN
  5. SOMA [Concomitant]
     Indication: FIBROMYALGIA
     Dosage: UNK, UNKNOWN
  6. AMBIEN [Concomitant]
     Indication: FIBROMYALGIA
     Dosage: UNK, UNKNOWN
  7. VIVELLE (ETHINYL ESTRADIOL (+) NORGESTIMATE) [Concomitant]
     Indication: MENOPAUSE
     Dosage: UNK, UNKNOWN
  8. PROGESTERONE [Concomitant]
     Indication: MENOPAUSE
     Dosage: UNK, UNKNOWN

REACTIONS (2)
  - Drug effect decreased [Unknown]
  - Product adhesion issue [Unknown]
